FAERS Safety Report 8982647 (Version 2)
Quarter: 2013Q2

REPORT INFORMATION
  Report Type: Spontaneous
  Country: US (occurrence: US)
  Receive Date: 20121221
  Receipt Date: 20130417
  Transmission Date: 20140414
  Serious: No
  Sender: FDA-Public Use
  Company Number: US-009507513-1212USA006942

PATIENT
  Age: 42 Year
  Sex: Female

DRUGS (2)
  1. AZASITE [Suspect]
     Indication: EYE INJURY
     Dosage: 2 GTT, BID
     Route: 047
     Dates: start: 20121213, end: 20121215
  2. AZASITE [Suspect]
     Dosage: 2 GTT, QD
     Route: 047
     Dates: start: 20121216

REACTIONS (3)
  - Drug dose omission [Unknown]
  - Inappropriate schedule of drug administration [Unknown]
  - No adverse event [Unknown]
